FAERS Safety Report 15041715 (Version 4)
Quarter: 2018Q3

REPORT INFORMATION
  Report Type: Spontaneous
  Country: US (occurrence: US)
  Receive Date: 20180621
  Receipt Date: 20180916
  Transmission Date: 20181010
  Serious: Yes (Other)
  Sender: FDA-Public Use
  Company Number: US-ROCHE-2137783

PATIENT
  Sex: Female

DRUGS (9)
  1. ACTEMRA [Suspect]
     Active Substance: TOCILIZUMAB
     Indication: RHEUMATOID ARTHRITIS
     Route: 065
     Dates: end: 2018
  2. PLAQUENIL [Suspect]
     Active Substance: HYDROXYCHLOROQUINE SULFATE
     Indication: RHEUMATOID ARTHRITIS
     Route: 065
  3. ENBREL [Suspect]
     Active Substance: ETANERCEPT
     Indication: RHEUMATOID ARTHRITIS
     Dosage: TREATMENT LENGTH: 12 YEARS AGO 2 OR 3 YEARS. DISCONTINUED DUE TO INEFFECTIVE
     Route: 065
     Dates: start: 2006
  4. METHOTREXATE. [Suspect]
     Active Substance: METHOTREXATE
     Indication: RHEUMATOID ARTHRITIS
     Dosage: 15 YEARS
     Route: 030
     Dates: start: 2003
  5. HUMIRA [Suspect]
     Active Substance: ADALIMUMAB
     Indication: RHEUMATOID ARTHRITIS
     Dosage: TREATMENT LENGTH: 15 YEARS AGO 2 OR 3 YEARS. DISCONTINUED DUE TO INEFFECTIVE
     Route: 058
     Dates: start: 2003
  6. XELJANZ [Suspect]
     Active Substance: TOFACITINIB CITRATE
     Indication: RHEUMATOID ARTHRITIS
     Dosage: TREATMENT LENGTH: 1 MONTH AND DISCONTINUED DUE TO INSURANCE
     Route: 048
  7. ORENCIA [Suspect]
     Active Substance: ABATACEPT
     Indication: RHEUMATOID ARTHRITIS
     Route: 065
     Dates: start: 201802
  8. METHOTREXATE. [Suspect]
     Active Substance: METHOTREXATE
     Indication: RHEUMATOID ARTHRITIS
     Route: 058
     Dates: start: 2003
  9. FOLIC ACID. [Concomitant]
     Active Substance: FOLIC ACID
     Indication: PRODUCT USED FOR UNKNOWN INDICATION

REACTIONS (11)
  - Drug ineffective [Unknown]
  - Ligament laxity [Unknown]
  - Alopecia [Recovered/Resolved]
  - Chest pain [Recovered/Resolved]
  - Intervertebral disc degeneration [Unknown]
  - Myalgia [Unknown]
  - Drug intolerance [Unknown]
  - Gingival bleeding [Recovered/Resolved]
  - Osteoarthritis [Unknown]
  - Joint stiffness [Recovered/Resolved]
  - Rheumatoid arthritis [Unknown]
